FAERS Safety Report 6708547-X (Version None)
Quarter: 2010Q2

REPORT INFORMATION
  Report Type: 
  Country: None (occurrence: None)
  Receive Date: 20100503
  Receipt Date: 20081014
  Transmission Date: 20101027
  Serious: Yes (Other)
  Sender: FDA-Public Use
  Company Number: US-BAYER-200814061BCC

PATIENT
  Age: 15 Year
  Sex: Female
  Weight: 82 kg

DRUGS (1)
  1. MIDOL [Suspect]
     Indication: SELF-INJURIOUS IDEATION
     Dosage: TOOK 17 PILLS
     Dates: start: 20081013, end: 20081013

REACTIONS (1)
  - INTENTIONAL SELF-INJURY [None]
